FAERS Safety Report 11440451 (Version 10)
Quarter: 2017Q1

REPORT INFORMATION
  Report Type: Report from Study
  Country: CA (occurrence: CA)
  Receive Date: 20150901
  Receipt Date: 20170114
  Transmission Date: 20170428
  Serious: Yes (Hospitalization, Other)
  Sender: FDA-Public Use
  Company Number: PHHY2015CA102810

PATIENT
  Age: 94 Year
  Sex: Male

DRUGS (9)
  1. LORAZEPAM. [Concomitant]
     Active Substance: LORAZEPAM
     Indication: PRODUCT USED FOR UNKNOWN INDICATION
     Dosage: 0.5 OT, PRN
     Route: 048
     Dates: start: 20151201
  2. FERROUS SULFATE. [Concomitant]
     Active Substance: FERROUS SULFATE
     Indication: PRODUCT USED FOR UNKNOWN INDICATION
     Dosage: 300 MG, BID
     Route: 048
     Dates: start: 20160602
  3. SANDOSTATIN LAR DEPOT [Suspect]
     Active Substance: OCTREOTIDE ACETATE
     Indication: GASTROINTESTINAL ANGIODYSPLASIA
     Dosage: 20 MG, QMO (ONCE A MONTH)
     Route: 030
     Dates: start: 20091101
  4. BISOPROLOL [Concomitant]
     Active Substance: BISOPROLOL
     Indication: PRODUCT USED FOR UNKNOWN INDICATION
     Dosage: 2.5 MG, QD (DAILY)
     Route: 048
     Dates: start: 20151201
  5. COLACE [Concomitant]
     Active Substance: DOCUSATE SODIUM
     Indication: PRODUCT USED FOR UNKNOWN INDICATION
     Dosage: 10 MG, BID
     Route: 048
     Dates: start: 20151201
  6. PANTOPRAZOLE [Concomitant]
     Active Substance: PANTOPRAZOLE SODIUM
     Indication: PRODUCT USED FOR UNKNOWN INDICATION
     Dosage: 40 MG, QD
     Route: 048
  7. SANDOSTATIN [Suspect]
     Active Substance: OCTREOTIDE ACETATE
     Indication: GASTROINTESTINAL ANGIODYSPLASIA
     Dosage: 50 UG, BID (Q 12 H) (FOR TWO WEEKS)
     Route: 058
     Dates: start: 20131003
  8. QUETIAPINE. [Concomitant]
     Active Substance: QUETIAPINE
     Indication: PRODUCT USED FOR UNKNOWN INDICATION
     Dosage: 25 MG, UNK
     Route: 048
     Dates: start: 20151201
  9. SERTRALINE [Concomitant]
     Active Substance: SERTRALINE HYDROCHLORIDE
     Indication: PRODUCT USED FOR UNKNOWN INDICATION
     Dosage: 50 MG, UNK
     Route: 048
     Dates: start: 20151201

REACTIONS (6)
  - Dementia Alzheimer^s type [Unknown]
  - Blood pressure systolic increased [Unknown]
  - Escherichia sepsis [Unknown]
  - Myocardial infarction [Unknown]
  - Lung disorder [Unknown]
  - Product use issue [Unknown]

NARRATIVE: CASE EVENT DATE: 20150921
